FAERS Safety Report 8949887 (Version 9)
Quarter: 2013Q2

REPORT INFORMATION
  Report Type: Report from Study
  Country: US (occurrence: US)
  Receive Date: 20121206
  Receipt Date: 20130626
  Transmission Date: 20140414
  Serious: Yes (Other)
  Sender: FDA-Public Use
  Company Number: US-PFIZER INC-2012297861

PATIENT
  Age: 77 Year
  Sex: Female
  Weight: 73.47 kg

DRUGS (5)
  1. PREGABALIN [Suspect]
     Indication: POST HERPETIC NEURALGIA
     Dosage: 495 MG/DAY
     Route: 048
     Dates: start: 20120925, end: 20121113
  2. LIPITOR [Suspect]
     Indication: HYPERLIPIDAEMIA
     Dosage: 40MG DAILY
     Route: 048
     Dates: start: 2002
  3. ZETIA [Suspect]
     Indication: HYPERLIPIDAEMIA
     Dosage: 10 MG DAILY
     Route: 048
     Dates: start: 2002
  4. CELEBREX [Concomitant]
     Indication: POST HERPETIC NEURALGIA
     Dosage: UNK
     Dates: start: 200812
  5. XANAX [Concomitant]
     Indication: INSOMNIA
     Dosage: UNK
     Dates: start: 2008

REACTIONS (1)
  - Thrombocytopenia [Recovered/Resolved with Sequelae]
